FAERS Safety Report 8033736-4 (Version None)
Quarter: 2012Q1

REPORT INFORMATION
  Report Type: 
  Country: None (occurrence: None)
  Receive Date: 20120110
  Receipt Date: 20111219
  Transmission Date: 20120608
  Serious: Yes (Hospitalization, Disabling)
  Sender: FDA-Public Use
  Company Number: JP-GLAXOSMITHKLINE-B0771118A

PATIENT
  Sex: Female

DRUGS (9)
  1. EVAMYL [Concomitant]
     Indication: INSOMNIA
     Dosage: 1MG PER DAY
     Route: 048
     Dates: start: 20110727
  2. LAMICTAL [Suspect]
     Indication: BIPOLAR DISORDER
     Dosage: 25MG ALTERNATE DAYS
     Route: 048
     Dates: start: 20111102, end: 20111206
  3. DEPAKENE [Concomitant]
     Dosage: 800MG PER DAY
     Route: 048
     Dates: start: 20111012, end: 20111221
  4. ROHYPNOL [Concomitant]
     Indication: INSOMNIA
     Dosage: 1MG PER DAY
     Route: 048
     Dates: start: 20110706, end: 20111125
  5. ROHYPNOL [Concomitant]
     Dosage: 2MG PER DAY
     Route: 048
     Dates: start: 20111126
  6. LULLAN [Concomitant]
     Indication: BIPOLAR DISORDER
     Dosage: 4MG PER DAY
     Route: 048
     Dates: start: 20110720, end: 20110816
  7. LULLAN [Concomitant]
     Dosage: 8MG PER DAY
     Route: 048
     Dates: start: 20110817
  8. MEILAX [Concomitant]
     Indication: INSOMNIA
     Dosage: 1MG PER DAY
     Route: 048
     Dates: start: 20110810
  9. DEPAKENE [Concomitant]
     Indication: BIPOLAR DISORDER
     Dosage: 400MG PER DAY
     Route: 048
     Dates: start: 20110727, end: 20111011

REACTIONS (3)
  - ECZEMA [None]
  - PYREXIA [None]
  - RASH [None]
